FAERS Safety Report 6692289-3 (Version None)
Quarter: 2010Q2

REPORT INFORMATION
  Report Type: 
  Country: None (occurrence: None)
  Receive Date: 20100419
  Receipt Date: 20100408
  Transmission Date: 20101027
  Serious: Yes (Other)
  Sender: FDA-Public Use
  Company Number: 2008US000479

PATIENT
  Age: 58 Year
  Sex: Female
  Weight: 82 kg

DRUGS (2)
  1. AMEVIVE [Suspect]
     Indication: PSORIASIS
     Dosage: 15 MG, WEEKLY, INTRAMUSCULAR; 15 MG, WEEKLY, INTRAMUSCULAR
     Route: 030
     Dates: start: 20031029, end: 20040218
  2. AMEVIVE [Suspect]
     Indication: PSORIASIS
     Dosage: 15 MG, WEEKLY, INTRAMUSCULAR; 15 MG, WEEKLY, INTRAMUSCULAR
     Route: 030
     Dates: start: 20040705, end: 20040929

REACTIONS (8)
  - ALOPECIA [None]
  - ASTHMA [None]
  - CONDITION AGGRAVATED [None]
  - GASTROOESOPHAGEAL REFLUX DISEASE [None]
  - LIPIDS ABNORMAL [None]
  - OEDEMA [None]
  - PSORIASIS [None]
  - TYPE 2 DIABETES MELLITUS [None]
